FAERS Safety Report 9396004 (Version 1)
Quarter: 2013Q3

REPORT INFORMATION
  Report Type: Spontaneous
  Country: US (occurrence: US)
  Receive Date: 20130711
  Receipt Date: 20130711
  Transmission Date: 20140515
  Serious: No
  Sender: FDA-Public Use
  Company Number: US-PFIZER INC-2013201552

PATIENT
  Age: 70 Year
  Sex: Female
  Weight: 58.96 kg

DRUGS (3)
  1. ESTRING [Suspect]
     Indication: VULVOVAGINAL DRYNESS
     Dosage: UNK
     Route: 067
     Dates: start: 20130623
  2. ESTRING [Suspect]
     Indication: POLLAKIURIA
  3. ARMOUR THYROID [Concomitant]
     Indication: THYROID DISORDER
     Dosage: 30 MG, 10X/WEEK

REACTIONS (5)
  - Palpitations [Unknown]
  - Memory impairment [Unknown]
  - Condition aggravated [Unknown]
  - Fatigue [Unknown]
  - Genital discomfort [Unknown]
